FAERS Safety Report 24376772 (Version 1)
Quarter: 2024Q3

REPORT INFORMATION
  Report Type: Spontaneous
  Country: US (occurrence: US)
  Receive Date: 20240930
  Receipt Date: 20240930
  Transmission Date: 20241017
  Serious: Yes (Hospitalization, Other)
  Sender: DR REDDYS
  Company Number: US-DRL-USA-LIT/USA/24/0014229

PATIENT
  Sex: Male

DRUGS (1)
  1. FENTANYL [Suspect]
     Active Substance: FENTANYL\FENTANYL CITRATE
     Indication: Product used for unknown indication
     Route: 048

REACTIONS (5)
  - Generalised tonic-clonic seizure [Recovered/Resolved]
  - Encephalopathy [Recovered/Resolved]
  - Respiratory distress [Unknown]
  - Unresponsive to stimuli [Recovered/Resolved]
  - Accidental overdose [Unknown]
